FAERS Safety Report 5104487-0 (Version None)
Quarter: 2006Q3

REPORT INFORMATION
  Report Type: 
  Country: None (occurrence: None)
  Receive Date: 20060731
  Receipt Date: 20060525
  Transmission Date: 20061208
  Serious: Yes (Other)
  Sender: FDA-Public Use
  Company Number: US-JNJFOC-20060505820

PATIENT
  Age: 40 Year
  Sex: Female
  Weight: 88.4514 kg

DRUGS (5)
  1. RISPERDAL [Suspect]
     Indication: SCHIZOAFFECTIVE DISORDER
     Dosage: 6 MG, 1 IN 1 DAY, ORAL
     Route: 048
     Dates: start: 19950101
  2. GEODON [Concomitant]
  3. GLUCOPHAGE [Concomitant]
  4. BYETTA [Concomitant]
  5. TAMAZEPAM (TEMAZEPAM) [Concomitant]

REACTIONS (6)
  - CONSTIPATION [None]
  - DIABETES MELLITUS NON-INSULIN-DEPENDENT [None]
  - INCREASED APPETITE [None]
  - SEDATION [None]
  - SPEECH DISORDER [None]
  - WEIGHT INCREASED [None]
